FAERS Safety Report 13036144 (Version 1)
Quarter: 2016Q4

REPORT INFORMATION
  Report Type: Spontaneous
  Country: US (occurrence: US)
  Receive Date: 20161216
  Receipt Date: 20161216
  Transmission Date: 20170207
  Serious: No
  Sender: FDA-Public Use
  Company Number: US-PERRIGO-15US013423

PATIENT
  Age: 72 Year
  Sex: Female
  Weight: 61.68 kg

DRUGS (4)
  1. BACITRACIN. [Suspect]
     Active Substance: BACITRACIN
     Indication: EYE INFECTION
     Dosage: SMALL RIBBON, BID
     Route: 047
     Dates: start: 20151218, end: 20151221
  2. HYDROCHLOROTHIAZIDE. [Concomitant]
     Active Substance: HYDROCHLOROTHIAZIDE
     Indication: HYPERTENSION
     Dosage: UNK
     Route: 065
  3. AMOXICILLIN AND CLAVULANATE POTASSIUM [Concomitant]
     Active Substance: AMOXICILLIN\CLAVULANATE POTASSIUM
     Indication: EYE INFECTION
     Dosage: 400 MG/57 MG
     Route: 065
     Dates: start: 20151217, end: 20151220
  4. TENORMIN [Concomitant]
     Active Substance: ATENOLOL
     Indication: MITRAL VALVE PROLAPSE
     Dosage: UNK
     Route: 065

REACTIONS (5)
  - Hypersensitivity [Not Recovered/Not Resolved]
  - Erythema [Not Recovered/Not Resolved]
  - Swelling face [Recovering/Resolving]
  - Application site swelling [Recovering/Resolving]
  - Application site pruritus [Recovering/Resolving]

NARRATIVE: CASE EVENT DATE: 20151219
